FAERS Safety Report 4336938-3 (Version None)
Quarter: 2004Q2

REPORT INFORMATION
  Report Type: 
  Country: None (occurrence: None)
  Receive Date: 20040408
  Receipt Date: 20040322
  Transmission Date: 20050107
  Serious: Yes (Hospitalization)
  Sender: FDA-Public Use
  Company Number: US071354

PATIENT
  Age: 36 Year
  Sex: Male
  Weight: 102.2 kg

DRUGS (5)
  1. EPOGEN [Suspect]
     Indication: RENAL FAILURE CHRONIC
     Dosage: 10000 U, 1 IN 1 WEEKS, SC
     Route: 058
     Dates: start: 20040223, end: 20040319
  2. LISINOPRIL [Concomitant]
  3. CARVEDILOL [Concomitant]
  4. CHLORTHALIDONE [Concomitant]
  5. CEPHALEXIN MONOHYDRATE [Concomitant]

REACTIONS (3)
  - BLOOD PRESSURE INCREASED [None]
  - HAEMATOCRIT DECREASED [None]
  - PRIAPISM [None]
